FAERS Safety Report 23636110 (Version 1)
Quarter: 2024Q1

REPORT INFORMATION
  Report Type: Spontaneous
  Country: US (occurrence: US)
  Receive Date: 20240315
  Receipt Date: 20240315
  Transmission Date: 20240409
  Serious: Yes (Hospitalization)
  Sender: FDA-Public Use
  Company Number: US-INTRA-CELLULAR THERAPIES, INC.-2024ICT00386

PATIENT
  Age: 47 Year
  Sex: Female

DRUGS (16)
  1. CAPLYTA [Suspect]
     Active Substance: LUMATEPERONE
     Indication: Bipolar disorder
     Dosage: UNK
  2. CAPLYTA [Suspect]
     Active Substance: LUMATEPERONE
     Indication: Depression
  3. TRULICITY [Concomitant]
     Active Substance: DULAGLUTIDE
  4. SILEXAN [Concomitant]
     Dosage: 80 MG
  5. METFORMIN [Concomitant]
     Active Substance: METFORMIN HYDROCHLORIDE
     Dosage: 1000, 2X/DAY
  6. DULOXETINE [Concomitant]
     Active Substance: DULOXETINE
     Dosage: 60 MG
  7. DULOXETINE [Concomitant]
     Active Substance: DULOXETINE
     Dosage: 80 MG
  8. TRAZODONE [Concomitant]
     Active Substance: TRAZODONE HYDROCHLORIDE
     Dosage: 100 MG
  9. BUSPAR [Concomitant]
     Active Substance: BUSPIRONE HYDROCHLORIDE
     Dosage: 20 MG, 3X/DAY
  10. GABAPENTIN [Concomitant]
     Active Substance: GABAPENTIN
     Dosage: 300 MG AM, 600 MG PM, 600 MG AT BEDTIME
  11. LORAZEPAM [Concomitant]
     Active Substance: LORAZEPAM
     Dosage: 0.5 UNK, AS NEEDED
  12. GLYCOPYRROLATE [Concomitant]
     Active Substance: GLYCOPYRROLATE
     Dosage: 1 MG, 2X/DAY
  13. LISINOPRIL [Concomitant]
     Active Substance: LISINOPRIL
     Dosage: 5 MG, 1X/DAY
  14. LASIX [Concomitant]
     Active Substance: FUROSEMIDE
     Dosage: 40 MG, 1X/DAY IN AM
  15. ATORVASTATIN [Concomitant]
     Active Substance: ATORVASTATIN
     Dosage: 40 MG
  16. CEPHALEXIN [Concomitant]
     Active Substance: CEPHALEXIN
     Dosage: UNK, 2X/DAY

REACTIONS (4)
  - Suicidal ideation [Unknown]
  - Personality disorder [Unknown]
  - Glycosylated haemoglobin increased [Unknown]
  - Nausea [Unknown]

NARRATIVE: CASE EVENT DATE: 20240101
